FAERS Safety Report 10012175 (Version 1)
Quarter: 2014Q1

REPORT INFORMATION
  Report Type: Report from Study
  Country: DE (occurrence: DE)
  Receive Date: 20140314
  Receipt Date: 20140314
  Transmission Date: 20141002
  Serious: Yes (Death, Hospitalization)
  Sender: FDA-Public Use
  Company Number: DE-GLAXOSMITHKLINE-B0976303A

PATIENT
  Age: 67 Year
  Sex: Female
  Weight: 94 kg

DRUGS (5)
  1. LAPATINIB [Suspect]
     Indication: BREAST CANCER METASTATIC
     Dosage: 250MG PER DAY
     Route: 048
     Dates: start: 20130122, end: 20130205
  2. ERIBULIN [Suspect]
     Indication: BREAST CANCER METASTATIC
     Dosage: 3.38MG EVERY 3 WEEKS
     Route: 042
     Dates: start: 20130122, end: 20130122
  3. METOPROLOL [Concomitant]
     Dosage: 50MG PER DAY
     Route: 065
     Dates: start: 2011, end: 20130809
  4. VALSARTAN [Concomitant]
     Dosage: 160MG PER DAY
     Route: 065
     Dates: start: 2006, end: 20130809
  5. LETROZOLE [Concomitant]
     Dates: start: 201010, end: 20130111

REACTIONS (4)
  - Pleural effusion [Recovering/Resolving]
  - Gastric cancer [Fatal]
  - Pulmonary embolism [Recovered/Resolved]
  - Pneumonitis [Recovered/Resolved]
